FAERS Safety Report 24121504 (Version 1)
Quarter: 2024Q3

REPORT INFORMATION
  Report Type: Spontaneous
  Country: US (occurrence: US)
  Receive Date: 20240722
  Receipt Date: 20240722
  Transmission Date: 20241017
  Serious: No
  Sender: SANDOZ
  Company Number: US-SANDOZ-SDZ2024US066918

PATIENT
  Age: 58 Year
  Sex: Female

DRUGS (1)
  1. ADALIMUMAB [Suspect]
     Active Substance: ADALIMUMAB\ISOPROPYL ALCOHOL
     Indication: Crohn^s disease
     Dosage: 160 MG, 40MG 4PENS TAKING ON 7//24
     Route: 003
     Dates: start: 20240706, end: 20240706

REACTIONS (5)
  - Swelling face [Recovering/Resolving]
  - Nasal congestion [Recovering/Resolving]
  - Dysphonia [Recovering/Resolving]
  - Pain [Recovering/Resolving]
  - Eye swelling [Recovering/Resolving]

NARRATIVE: CASE EVENT DATE: 20240710
